FAERS Safety Report 4279264-3 (Version None)
Quarter: 2004Q1

REPORT INFORMATION
  Report Type: 
  Country: None (occurrence: None)
  Receive Date: 20040122
  Receipt Date: 20040109
  Transmission Date: 20041129
  Serious: Yes (Hospitalization)
  Sender: FDA-Public Use
  Company Number: 2004001697

PATIENT
  Age: 46 Year
  Sex: Male

DRUGS (2)
  1. ZYRTEC [Suspect]
     Indication: PRURITUS
     Dosage: 10 MG DAILY, ORAL
     Route: 048
     Dates: start: 20031009, end: 20031030
  2. BEZAFIBRATE (BEZAFIBRATE) [Suspect]
     Indication: ILL-DEFINED DISORDER
     Dosage: ORAL
     Route: 048
     Dates: start: 20030902, end: 20031020

REACTIONS (2)
  - PEMPHIGUS [None]
  - SCAB [None]
